FAERS Safety Report 6765332-0 (Version None)
Quarter: 2010Q2

REPORT INFORMATION
  Report Type: 
  Country: None (occurrence: None)
  Receive Date: 20100608
  Receipt Date: 20100519
  Transmission Date: 20101027
  Serious: No
  Sender: FDA-Public Use
  Company Number: JP-GDP-10407708

PATIENT
  Sex: Female

DRUGS (5)
  1. DIFFERIN [Suspect]
     Indication: ACNE
     Dosage: TOPICAL
     Route: 061
     Dates: start: 20081206, end: 20090105
  2. DIFFERIN [Suspect]
     Indication: ACNE
     Dosage: TOPICAL
     Route: 061
     Dates: start: 20090501, end: 20090501
  3. RULID [Concomitant]
  4. VITAMEDIN [Concomitant]
  5. FLAVITAN [Concomitant]

REACTIONS (5)
  - DERMATITIS CONTACT [None]
  - DRY SKIN [None]
  - PIGMENTATION DISORDER [None]
  - SWELLING FACE [None]
  - UPPER RESPIRATORY TRACT INFECTION [None]
